FAERS Safety Report 24396771 (Version 1)
Quarter: 2024Q4

REPORT INFORMATION
  Report Type: Spontaneous
  Country: US (occurrence: US)
  Receive Date: 20241004
  Receipt Date: 20241004
  Transmission Date: 20250115
  Serious: Yes (Other)
  Sender: FRESENIUS KABI
  Company Number: US-FreseniusKabi-FK202414520

PATIENT
  Age: 2 Month

DRUGS (1)
  1. SMOFLIPID [Suspect]
     Active Substance: FISH OIL\MEDIUM-CHAIN TRIGLYCERIDES\OLIVE OIL\SOYBEAN OIL
     Indication: Parenteral nutrition
     Dosage: FORM OF ADMINISTRATION: EMULSION FOR INJECTION?DOSE: 2 GM/KG/D?(WEANING PN) WITH 50 PERCENT OF KCAL

REACTIONS (1)
  - Fatty acid deficiency [Unknown]
